FAERS Safety Report 8599159 (Version 4)
Quarter: 2012Q4

REPORT INFORMATION
  Report Type: 
  Country: JP (occurrence: JP)
  Receive Date: 20120605
  Receipt Date: 20121227
  Transmission Date: 20130627
  Serious: Yes (Hospitalization)
  Sender: FDA-Public Use
  Company Number: JP-PFIZER INC-2012133035

PATIENT
  Age: 40 Year
  Sex: Male
  Weight: 73.2 kg

DRUGS (10)
  1. CHAMPIX [Suspect]
     Indication: NICOTINE DEPENDENCE
     Dosage: 0.5 mg, 1x/day
     Route: 048
     Dates: start: 20120416, end: 20120418
  2. CHAMPIX [Suspect]
     Dosage: 0.5 mg, 2x/day
     Route: 048
     Dates: start: 20120419, end: 20120422
  3. CHAMPIX [Suspect]
     Dosage: 1 mg, 2x/day
     Route: 048
     Dates: start: 20120423, end: 20120531
  4. LANSOPRAZOLE [Suspect]
     Indication: ESOPHAGITIS
     Dosage: 15 mg, 1x/day
     Route: 048
     Dates: start: 20120416, end: 20120422
  5. LANSOPRAZOLE [Suspect]
     Dosage: 15 mg, 1x/day
     Route: 048
     Dates: start: 20120511, end: 20120524
  6. IRRIBOW [Suspect]
     Indication: IRRITABLE BOWEL SYNDROME
     Dosage: 5 ug, 1x/day
     Route: 048
     Dates: start: 20120512, end: 20120518
  7. FAMOTIDINE [Concomitant]
     Indication: ESOPHAGITIS
     Dosage: 20 mg, 2x/day
     Route: 048
     Dates: start: 20120528
  8. FAMOTIDINE [Concomitant]
     Indication: GASTRITIS
  9. TSUKUSHI AM [Concomitant]
     Indication: GASTRITIS
     Dosage: 1.3 g, 3x/day
     Route: 048
     Dates: start: 20120528
  10. GASTROM [Concomitant]
     Indication: GASTRITIS
     Dosage: 1.0 g, 3x/day
     Route: 048
     Dates: start: 20120528

REACTIONS (21)
  - Liver disorder [Recovered/Resolved]
  - Rash [Recovered/Resolved]
  - Oesophagitis [Recovering/Resolving]
  - Irritable bowel syndrome [Recovering/Resolving]
  - Gastritis [Recovering/Resolving]
  - Vomiting [None]
  - Abdominal pain [None]
  - Nausea [None]
  - Decreased appetite [None]
  - Jaundice [None]
  - Aspartate aminotransferase increased [None]
  - Alanine aminotransferase increased [None]
  - Gamma-glutamyltransferase increased [None]
  - Blood bilirubin increased [None]
  - Blood lactate dehydrogenase increased [None]
  - Abdominal pain upper [None]
  - Blood alkaline phosphatase increased [None]
  - Bilirubin conjugated increased [None]
  - Blood immunoglobulin G increased [None]
  - Blood immunoglobulin A increased [None]
  - Lymphocyte stimulation test positive [None]
